FAERS Safety Report 12325062 (Version 2)
Quarter: 2016Q2

REPORT INFORMATION
  Report Type: Report from Study
  Country: BE (occurrence: BE)
  Receive Date: 20160502
  Receipt Date: 20160506
  Transmission Date: 20160815
  Serious: Yes (Death, Hospitalization, Other)
  Sender: FDA-Public Use
  Company Number: BE-BRISTOL-MYERS SQUIBB COMPANY-BMS-2016-023213

PATIENT
  Age: 53 Year
  Sex: Female
  Weight: 94 kg

DRUGS (16)
  1. STEOVIT D3 [Concomitant]
     Active Substance: CALCIUM CARBONATE\CHOLECALCIFEROL
     Indication: PRODUCT USED FOR UNKNOWN INDICATION
     Dosage: UNK
     Route: 065
     Dates: start: 20150716
  2. PROPIONATE [Concomitant]
     Indication: ADVERSE EVENT
     Route: 065
  3. NADROPARINE [Concomitant]
     Active Substance: NADROPARIN
     Indication: ADVERSE EVENT
     Dosage: UNK
     Route: 065
     Dates: start: 20160304
  4. PARACETAMOL [Concomitant]
     Active Substance: ACETAMINOPHEN
     Indication: PRODUCT USED FOR UNKNOWN INDICATION
     Dosage: UNK
     Route: 065
     Dates: start: 201507
  5. DOMPERIDONE MALEATE [Concomitant]
     Active Substance: DOMPERIDONE MALEATE
     Indication: PRODUCT USED FOR UNKNOWN INDICATION
     Dosage: UNK
     Route: 065
     Dates: start: 201511
  6. RUPATADINE FUMARATE [Concomitant]
     Active Substance: RUPATADINE FUMARATE
     Indication: ADVERSE EVENT
     Dosage: UNK
     Route: 065
     Dates: start: 20160302, end: 20160311
  7. PRAZEPAM [Concomitant]
     Active Substance: PRAZEPAM
     Indication: ADVERSE EVENT
     Dosage: UNK
     Route: 065
     Dates: start: 20160304
  8. METHYLPREDNISOLONE. [Concomitant]
     Active Substance: METHYLPREDNISOLONE
     Indication: ADVERSE EVENT
     Dosage: 64 MG, UNK
     Route: 065
     Dates: start: 20160309, end: 20160312
  9. PANTOMED                           /00178901/ [Concomitant]
     Indication: PRODUCT USED FOR UNKNOWN INDICATION
     Dosage: UNK
     Route: 065
     Dates: start: 20160315
  10. ZOLPIDEM [Concomitant]
     Active Substance: ZOLPIDEM\ZOLPIDEM TARTRATE
     Indication: ADVERSE EVENT
     Dosage: UNK
     Route: 065
     Dates: start: 20160310
  11. CLOBETASOL [Concomitant]
     Active Substance: CLOBETASOL
     Indication: ADVERSE EVENT
     Dosage: 20 MG, UNK
     Route: 065
     Dates: start: 20160302
  12. RANITIDINE. [Concomitant]
     Active Substance: RANITIDINE
     Indication: PRODUCT USED FOR UNKNOWN INDICATION
     Dosage: UNK
     Route: 065
     Dates: start: 20160315, end: 20160318
  13. NIVOLUMAB [Suspect]
     Active Substance: NIVOLUMAB
     Indication: SMALL CELL LUNG CANCER
     Dosage: 1 DF, UNK
     Route: 042
     Dates: start: 20160203
  14. DENOSUMAB [Concomitant]
     Active Substance: DENOSUMAB
     Indication: PRODUCT USED FOR UNKNOWN INDICATION
     Dosage: UNK
     Route: 065
     Dates: start: 20150719
  15. METHYLPREDNISOLONE. [Concomitant]
     Active Substance: METHYLPREDNISOLONE
     Dosage: 96 MG, UNK
     Route: 065
     Dates: start: 20160313, end: 20160318
  16. AUGMENTIN [Concomitant]
     Active Substance: AMOXICILLIN\CLAVULANATE POTASSIUM
     Indication: PRODUCT USED FOR UNKNOWN INDICATION
     Dosage: 2 G, UNK
     Route: 042
     Dates: start: 20160323

REACTIONS (2)
  - Pneumonia [Fatal]
  - Erysipelas [Recovering/Resolving]

NARRATIVE: CASE EVENT DATE: 20160321
